FAERS Safety Report 11843121 (Version 1)
Quarter: 2015Q4

REPORT INFORMATION
  Report Type: Report from Study
  Country: US (occurrence: US)
  Receive Date: 20151216
  Receipt Date: 20151216
  Transmission Date: 20160305
  Serious: Yes (Hospitalization)
  Sender: FDA-Public Use
  Company Number: US-AMGEN-USASL2015133708

PATIENT
  Sex: Female

DRUGS (3)
  1. ENBREL [Suspect]
     Active Substance: ETANERCEPT
     Indication: RHEUMATOID ARTHRITIS
     Dosage: UNK
     Route: 065
  2. METHOTREXATE [Concomitant]
     Active Substance: METHOTREXATE
     Dosage: UNK
  3. PREDNISONE. [Concomitant]
     Active Substance: PREDNISONE
     Dosage: UNK

REACTIONS (10)
  - Cardiac murmur [Unknown]
  - Tachycardia [Unknown]
  - Gait disturbance [Unknown]
  - Arthralgia [Unknown]
  - Pyrexia [Unknown]
  - Pain [Unknown]
  - Knee deformity [Unknown]
  - Vomiting [Unknown]
  - Diarrhoea [Unknown]
  - Joint swelling [Unknown]
